FAERS Safety Report 6867280-4 (Version None)
Quarter: 2010Q3

REPORT INFORMATION
  Report Type: 
  Country: None (occurrence: None)
  Receive Date: 20100722
  Receipt Date: 20100713
  Transmission Date: 20110219
  Serious: Yes (Other)
  Sender: FDA-Public Use
  Company Number: US-SANOFI-AVENTIS-2010SA040643

PATIENT
  Age: 61 Year

DRUGS (10)
  1. OXALIPLATIN [Suspect]
     Indication: COLON CANCER
     Route: 042
     Dates: start: 20091119, end: 20091119
  2. OXALIPLATIN [Suspect]
     Route: 042
  3. LEUCOVORIN CALCIUM [Suspect]
     Indication: COLON CANCER
     Route: 042
     Dates: start: 20091119, end: 20091119
  4. LEUCOVORIN CALCIUM [Suspect]
     Route: 042
  5. FLUOROURACIL [Suspect]
     Indication: COLON CANCER
     Route: 040
     Dates: start: 20091119, end: 20091119
  6. FLUOROURACIL [Suspect]
     Route: 041
     Dates: start: 20091119, end: 20091120
  7. FLUOROURACIL [Suspect]
     Route: 040
  8. FLUOROURACIL [Suspect]
     Route: 041
  9. BEVACIZUMAB [Suspect]
     Indication: COLON CANCER
     Route: 042
     Dates: start: 20091119, end: 20091119
  10. BEVACIZUMAB [Suspect]
     Route: 042

REACTIONS (1)
  - PROTEINURIA [None]
